FAERS Safety Report 7041394-0 (Version None)
Quarter: 2010Q4

REPORT INFORMATION
  Report Type: 
  Country: None (occurrence: None)
  Receive Date: 20101013
  Receipt Date: 20101007
  Transmission Date: 20110411
  Serious: Yes (Hospitalization, Other)
  Sender: FDA-Public Use
  Company Number: US-AMGEN-KDL271884

PATIENT
  Sex: Female

DRUGS (6)
  1. ENBREL [Suspect]
     Indication: PSORIATIC ARTHROPATHY
     Route: 058
     Dates: start: 20040201
  2. ENBREL [Suspect]
     Indication: PSORIASIS
  3. SYNTHROID [Concomitant]
  4. UNSPECIFIED HORMONE REPLACEMENT THERAPY AGENT [Concomitant]
  5. VITAMIN D [Concomitant]
  6. DOVONEX [Concomitant]

REACTIONS (6)
  - AMNESIA [None]
  - DEPRESSED LEVEL OF CONSCIOUSNESS [None]
  - LACRIMATION INCREASED [None]
  - PSORIASIS [None]
  - UTERINE LEIOMYOMA [None]
  - VISUAL IMPAIRMENT [None]
